FAERS Safety Report 10004153 (Version 1)
Quarter: 2014Q1

REPORT INFORMATION
  Report Type: Report from Study
  Country: NL (occurrence: NL)
  Receive Date: 20140312
  Receipt Date: 20140312
  Transmission Date: 20141002
  Serious: Yes (Hospitalization, Other)
  Sender: FDA-Public Use
  Company Number: PHHY2014NL029257

PATIENT
  Sex: Female

DRUGS (4)
  1. SANDOSTATIN LAR [Suspect]
     Dosage: 20 MG PER 2 ML, ONCE EVERY 4 WEEKS
     Route: 030
  2. SANDOSTATIN LAR [Suspect]
     Dosage: 20 MG PER 2 ML, ONCE EVERY 4 WEEKS
     Route: 030
     Dates: start: 20140106
  3. SANDOSTATIN LAR [Suspect]
     Dosage: 20 MG PER 2 ML, ONCE EVERY 4 WEEKS
     Route: 030
     Dates: start: 20140206
  4. SANDOSTATIN LAR [Suspect]
     Dosage: 20 MG PER 2 ML, ONCE EVERY 4 WEEKS
     Route: 030
     Dates: start: 20140307

REACTIONS (3)
  - Hip fracture [Recovering/Resolving]
  - Fall [Recovering/Resolving]
  - Urinary tract infection [Recovered/Resolved]
